FAERS Safety Report 9182629 (Version 3)
Quarter: 2016Q2

REPORT INFORMATION
  Report Type: Spontaneous
  Country: US (occurrence: US)
  Receive Date: 20130322
  Receipt Date: 20160503
  Transmission Date: 20160815
  Serious: No
  Sender: FDA-Public Use
  Company Number: US-009507513-1303USA011188

PATIENT
  Sex: Male
  Weight: 78.91 kg

DRUGS (2)
  1. PROPECIA [Suspect]
     Active Substance: FINASTERIDE
     Indication: ANDROGENETIC ALOPECIA
     Dosage: 1 MG, UNK
     Route: 048
     Dates: start: 20060823, end: 20110822
  2. FINASTERIDE. [Suspect]
     Active Substance: FINASTERIDE
     Dosage: 1 MG, QD
     Route: 048
     Dates: start: 2007, end: 20111017

REACTIONS (10)
  - Asthenia [Unknown]
  - Varicose vein [Unknown]
  - Arthralgia [Unknown]
  - Erectile dysfunction [Not Recovered/Not Resolved]
  - Limb asymmetry [Unknown]
  - Sexual dysfunction [Unknown]
  - Temporomandibular joint syndrome [Unknown]
  - Onychomycosis [Unknown]
  - Libido decreased [Unknown]
  - Cognitive disorder [Not Recovered/Not Resolved]

NARRATIVE: CASE EVENT DATE: 2007
